FAERS Safety Report 9162902 (Version 1)
Quarter: 2013Q1

REPORT INFORMATION
  Report Type: Report from Study
  Country: DE (occurrence: DE)
  Receive Date: 20130314
  Receipt Date: 20130314
  Transmission Date: 20140127
  Serious: Yes (Death, Life-Threatening, Hospitalization)
  Sender: FDA-Public Use
  Company Number: PHHY2013DE018516

PATIENT
  Sex: Female
  Weight: 66 kg

DRUGS (6)
  1. GLYCOPYRRONIUM BROMIDE [Suspect]
     Indication: CHRONIC OBSTRUCTIVE PULMONARY DISEASE
     Dosage: 44 UG, QD
     Dates: start: 20121105, end: 20130207
  2. ONBREZ [Suspect]
     Indication: CHRONIC OBSTRUCTIVE PULMONARY DISEASE
     Dosage: 1 DF, QD
     Dates: start: 20130207
  3. BECLO [Concomitant]
     Dosage: DOSE-METERED INHALER
  4. BERODUAL N [Concomitant]
     Dosage: DOSE-METERED INHALER, COMPRESSED GAS INHALATION
  5. OXIS [Concomitant]
     Dosage: TURBOHALER 6-/12 MICROGRAM POWDER FOR INHALATION
  6. RAMIPRIL [Concomitant]
     Dosage: 5 MG, UNK

REACTIONS (1)
  - Chronic obstructive pulmonary disease [Fatal]
